FAERS Safety Report 5733192-2 (Version None)
Quarter: 2008Q2

REPORT INFORMATION
  Report Type: 
  Country: None (occurrence: None)
  Receive Date: 20080509
  Receipt Date: 20080424
  Transmission Date: 20081010
  Serious: Yes (Other)
  Sender: FDA-Public Use
  Company Number: US-ASTRAZENECA-2008UW08326

PATIENT
  Age: 40 Year
  Sex: Male
  Weight: 99.8 kg

DRUGS (7)
  1. SEROQUEL [Suspect]
     Indication: SLEEP DISORDER
     Route: 048
     Dates: start: 20080201
  2. SEROQUEL [Suspect]
     Indication: ANXIETY
     Route: 048
     Dates: start: 20080201
  3. SEROQUEL [Suspect]
     Indication: DEPRESSION
     Route: 048
     Dates: start: 20080201
  4. SEROQUEL [Suspect]
     Route: 048
  5. SEROQUEL [Suspect]
     Route: 048
  6. SEROQUEL [Suspect]
     Route: 048
  7. DESERIL [Concomitant]

REACTIONS (7)
  - BLOOD PARATHYROID HORMONE INCREASED [None]
  - HALLUCINATION, AUDITORY [None]
  - HYPOAESTHESIA [None]
  - NEPHROLITHIASIS [None]
  - PARAESTHESIA [None]
  - SOMNOLENCE [None]
  - SPEECH DISORDER [None]
